FAERS Safety Report 13688329 (Version 2)
Quarter: 2018Q3

REPORT INFORMATION
  Report Type: Spontaneous
  Country: US (occurrence: US)
  Receive Date: 20170626
  Receipt Date: 20180723
  Transmission Date: 20181010
  Serious: No
  Sender: FDA-Public Use
  Company Number: US-TEVA-775334ACC

PATIENT
  Sex: Female

DRUGS (1)
  1. LAMOTRIGINE EXTENDED?RELEASE TABLETS [Suspect]
     Active Substance: LAMOTRIGINE
     Indication: SEIZURE
     Dosage: 300 MILLIGRAM DAILY;
     Route: 048

REACTIONS (7)
  - Loss of personal independence in daily activities [Unknown]
  - Nausea [Unknown]
  - Drug dose omission [Unknown]
  - Asthenia [Unknown]
  - Dizziness [Recovered/Resolved]
  - Pain [Unknown]
  - Malaise [Recovered/Resolved]

NARRATIVE: CASE EVENT DATE: 20170124
